FAERS Safety Report 9624766 (Version 3)
Quarter: 2013Q4

REPORT INFORMATION
  Report Type: Spontaneous
  Country: IT (occurrence: IT)
  Receive Date: 20131015
  Receipt Date: 20131220
  Transmission Date: 20140711
  Serious: Yes (Hospitalization)
  Sender: FDA-Public Use
  Company Number: IT-MYLANLABS-2013S1022291

PATIENT
  Age: 72 Year
  Sex: Female

DRUGS (6)
  1. PACLITAXEL [Suspect]
     Indication: PRODUCT USED FOR UNKNOWN INDICATION
     Route: 042
     Dates: start: 20130930, end: 20130930
  2. ZOFRAN [Concomitant]
     Indication: PREMEDICATION
     Dates: start: 20130930, end: 20130930
  3. TRIMETON /00072502/ [Concomitant]
     Indication: PREMEDICATION
     Dates: start: 20130930, end: 20130930
  4. RANIDIL [Concomitant]
     Indication: PREMEDICATION
     Dates: start: 20130930, end: 20130930
  5. DELTACORTENE [Concomitant]
     Indication: PREMEDICATION
     Dates: start: 20130929, end: 20130930
  6. DECADRON [Concomitant]
     Indication: PREMEDICATION
     Dates: start: 20130930, end: 20130930

REACTIONS (1)
  - Bronchospasm [Recovered/Resolved]
